FAERS Safety Report 11285989 (Version 2)
Quarter: 2015Q3

REPORT INFORMATION
  Report Type: Report from Study
  Country: ZA (occurrence: ZA)
  Receive Date: 20150721
  Receipt Date: 20150805
  Transmission Date: 20151125
  Serious: Yes (Death, Other)
  Sender: FDA-Public Use
  Company Number: ZA-AMGEN-ZAFSL2015071399

PATIENT
  Age: 80 Year
  Sex: Male
  Weight: 72 kg

DRUGS (1)
  1. ARANESP [Suspect]
     Active Substance: DARBEPOETIN ALFA
     Indication: NEPHROGENIC ANAEMIA
     Dosage: 30 MG, QWK
     Route: 058
     Dates: start: 2013

REACTIONS (12)
  - Bone disorder [Unknown]
  - Thrombocytopenia [Unknown]
  - Cardiomegaly [Unknown]
  - Polychromasia [Unknown]
  - Lower respiratory tract infection [Fatal]
  - Coma [Fatal]
  - Anisocytosis [Unknown]
  - Osteopenia [Unknown]
  - Red blood cell target cells present [Unknown]
  - Anaemia macrocytic [Unknown]
  - Pulmonary hilar enlargement [Unknown]
  - Lymphopenia [Unknown]

NARRATIVE: CASE EVENT DATE: 20150711
